FAERS Safety Report 15321098 (Version 1)
Quarter: 2018Q4

REPORT INFORMATION
  Report Type: Spontaneous
  Country: US (occurrence: US)
  Receive Date: 20180827
  Receipt Date: 20180827
  Transmission Date: 20190204
  Serious: No
  Sender: FDA-Public Use
  Company Number: US-BRAINTREE LABORATORIES-180093

PATIENT
  Age: 57 Year
  Sex: Male
  Weight: 61.23 kg

DRUGS (1)
  1. PEG-3350 AND ELECTROLYTES [Suspect]
     Active Substance: POLYETHYLENE GLYCOL 3350\POTASSIUM CHLORIDE\SODIUM BICARBONATE\SODIUM CHLORIDE\SODIUM SULFATE\SODIUM SULFATE ANHYDROUS
     Dosage: 0.5L
     Route: 048
     Dates: start: 20180213, end: 20180213

REACTIONS (3)
  - Blood urine present [None]
  - Pollakiuria [None]
  - Abdominal pain lower [None]

NARRATIVE: CASE EVENT DATE: 20180213
